FAERS Safety Report 17197654 (Version 1)
Quarter: 2019Q4

REPORT INFORMATION
  Report Type: Spontaneous
  Country: FI (occurrence: FI)
  Receive Date: 20191224
  Receipt Date: 20191224
  Transmission Date: 20200122
  Serious: Yes (Death)
  Sender: FDA-Public Use
  Company Number: FI-009507513-1911FIN004819

PATIENT
  Age: 71 Year
  Sex: Male

DRUGS (15)
  1. KEYTRUDA [Suspect]
     Active Substance: PEMBROLIZUMAB
     Dosage: 200 MILLIGRAM, 3 WEEK CYCLE
     Route: 042
     Dates: start: 20190905
  2. PEMETREXED DISODIUM [Concomitant]
     Active Substance: PEMETREXED DISODIUM
  3. PANTOPRAZOL KRKA [Concomitant]
     Active Substance: PANTOPRAZOLE
     Dosage: DOSAGE FORM: ENTERIC-COATED TABLET, 40 MILLIGRAM, ONCE A DAY
     Route: 048
  4. BURANA [Concomitant]
     Active Substance: IBUPROFEN
     Dosage: 600 MG IF NEEDED (MAXIMUM OF 1800 MG/DAY)
     Route: 048
  5. ONDANSETRON [Concomitant]
     Active Substance: ONDANSETRON
     Dosage: 8 MG IF NEEDED (MAXIMUM OF 16 MG/DAY)
     Route: 048
  6. KEYTRUDA [Suspect]
     Active Substance: PEMBROLIZUMAB
     Dosage: 200 MILLIGRAM, 3 WEEK CYCLE
     Route: 042
     Dates: start: 20191010
  7. ATORVASTATIN ACCORD [Concomitant]
     Active Substance: ATORVASTATIN
     Dosage: 10 MILLIGRAM, ONCE A DAY
     Route: 048
  8. PACLITAXEL. [Concomitant]
     Active Substance: PACLITAXEL
     Dosage: 300 MILLIGRAM (ON DAY 1)
     Route: 042
     Dates: start: 2019
  9. CARBOPLATIN. [Concomitant]
     Active Substance: CARBOPLATIN
     Dosage: 520 MILLIGRAM (ON DAY 1)
     Route: 042
     Dates: start: 2019
  10. PELGRAZ [Concomitant]
     Active Substance: PEGFILGRASTIM
     Dosage: 1 SUBCUTANEOUS INJECTION 24 HOURS AFTER THE END OF CYTOSTATIC TREATMENT
     Route: 058
  11. PANADOL FORTE [Concomitant]
     Dosage: 1 G IF NEEDED (MAXIMUM OF 3 G/DAY)
     Route: 048
  12. APURIN [Concomitant]
     Active Substance: ALLOPURINOL
     Dosage: 100 MILLIGRAM, ONCE A DAY
     Route: 048
  13. IMOVANE [Concomitant]
     Active Substance: ZOPICLONE
     Dosage: 7.5 MILLIGRAM IF NEEDED
     Route: 048
  14. DEXAMETASON [Concomitant]
     Active Substance: DEXAMETHASONE
     Dosage: 2-3 TABLETS IN THE MORNING IF NEEDED AFTER THE DAY OF CYTOSTATIC TREATMENT
     Route: 048
  15. PRIMPERAN [Concomitant]
     Active Substance: METOCLOPRAMIDE HYDROCHLORIDE
     Dosage: 10 MG IF NEEDED (MAXIMUM OF 30 MG/DAY)
     Route: 048

REACTIONS (4)
  - Dyspnoea [Unknown]
  - Peripheral ischaemia [Unknown]
  - Incorrect product administration duration [Unknown]
  - Pneumonitis [Fatal]

NARRATIVE: CASE EVENT DATE: 20191010
